FAERS Safety Report 8321315 (Version 2)
Quarter: 2012Q4

REPORT INFORMATION
  Report Type: 
  Country: US (occurrence: US)
  Receive Date: 20120104
  Receipt Date: 20121204
  Transmission Date: 20130627
  Serious: Yes (Other)
  Sender: FDA-Public Use
  Company Number: US-ROCHE-1027023

PATIENT
  Sex: Female
  Weight: 56.75 kg

DRUGS (1)
  1. ACCUTANE [Suspect]
     Indication: ACNE
     Dosage: starts from late 1980^s to early 1990
     Route: 065

REACTIONS (6)
  - Crohn^s disease [Unknown]
  - Inflammatory bowel disease [Unknown]
  - Depression [Not Recovered/Not Resolved]
  - Injury [Unknown]
  - Intestinal haemorrhage [Unknown]
  - Irritable bowel syndrome [Unknown]
